FAERS Safety Report 17019504 (Version 2)
Quarter: 2019Q4

REPORT INFORMATION
  Report Type: Spontaneous
  Country: AU (occurrence: AU)
  Receive Date: 20191112
  Receipt Date: 20191115
  Transmission Date: 20200122
  Serious: Yes (Other)
  Sender: FDA-Public Use
  Company Number: AU-AMGEN-AUSSP2019184601

PATIENT
  Age: 18 Year
  Sex: Male

DRUGS (2)
  1. BLINCYTO [Suspect]
     Active Substance: BLINATUMOMAB
     Indication: PRECURSOR B-LYMPHOBLASTIC LYMPHOMA
     Dosage: UNK
     Route: 065
     Dates: start: 2018
  2. CYCLOPHOSPHAMIDE. [Concomitant]
     Active Substance: CYCLOPHOSPHAMIDE
     Dosage: UNK
     Dates: start: 20181026

REACTIONS (9)
  - Temporomandibular joint syndrome [Unknown]
  - Lymphadenopathy [Unknown]
  - Facial paralysis [Unknown]
  - Bronchopulmonary aspergillosis [Recovering/Resolving]
  - Precursor B-lymphoblastic lymphoma refractory [Unknown]
  - Pancytopenia [Unknown]
  - Eyelid ptosis [Unknown]
  - Epstein-Barr virus test positive [Unknown]
  - Headache [Unknown]

NARRATIVE: CASE EVENT DATE: 20180711
